FAERS Safety Report 4317946-5 (Version None)
Quarter: 2004Q1

REPORT INFORMATION
  Report Type: 
  Country: None (occurrence: None)
  Receive Date: 20040316
  Receipt Date: 20040315
  Transmission Date: 20041129
  Serious: Yes (Other)
  Sender: FDA-Public Use
  Company Number: US-GLAXOSMITHKLINE-A0502861A

PATIENT
  Age: 68 Year
  Sex: Female

DRUGS (8)
  1. SEREVENT [Suspect]
     Indication: ASTHMA
  2. FLOVENT [Suspect]
     Indication: ASTHMA
  3. ADVAIR DISKUS 100/50 [Suspect]
     Indication: ASTHMA
     Dosage: 1PUFF TWICE PER DAY
     Route: 055
     Dates: start: 20020101
  4. MIACALCIN [Concomitant]
  5. EVISTA [Concomitant]
  6. CALCIUM [Concomitant]
  7. VITAMIN D [Concomitant]
  8. MULTIVITAMIN [Concomitant]

REACTIONS (2)
  - BONE DENSITY DECREASED [None]
  - CATARACT [None]
